FAERS Safety Report 15190878 (Version 1)
Quarter: 2018Q3

REPORT INFORMATION
  Report Type: Spontaneous
  Country: US (occurrence: US)
  Receive Date: 20180625
  Receipt Date: 20180625
  Transmission Date: 20181010
  Serious: Yes (Life-Threatening, Hospitalization, Disabling, Other)
  Sender: FDA-Public Use
  Company Number: None

PATIENT
  Age: 52 Year
  Sex: Female

DRUGS (11)
  1. NORVASC [Concomitant]
     Active Substance: AMLODIPINE BESYLATE
  2. ALLEGRA [Concomitant]
     Active Substance: FEXOFENADINE HYDROCHLORIDE
  3. VITAMIN D [Concomitant]
     Active Substance: CHOLECALCIFEROL
  4. GADOLINIUM CONTRAST DYE [Suspect]
     Active Substance: GADOLINIUM
  5. SIMVISTATIN [Concomitant]
     Active Substance: SIMVASTATIN
  6. ATIVAN [Concomitant]
     Active Substance: LORAZEPAM
  7. LEVISIN [Concomitant]
  8. ALIGN [Concomitant]
     Active Substance: BIFIDOBACTERIUM LONGUM SUBSP. INFANTIS
  9. ASA [Concomitant]
     Active Substance: ASPIRIN
  10. ESTRACE [Concomitant]
     Active Substance: ESTRADIOL
  11. TOPROL XL [Concomitant]
     Active Substance: METOPROLOL SUCCINATE

REACTIONS (7)
  - Abdominal pain [None]
  - Feeling abnormal [None]
  - Drug screen positive [None]
  - Quality of life decreased [None]
  - Muscle twitching [None]
  - Impaired work ability [None]
  - Myalgia [None]

NARRATIVE: CASE EVENT DATE: 20090610
